FAERS Safety Report 18146957 (Version 1)
Quarter: 2020Q3

REPORT INFORMATION
  Report Type: Spontaneous
  Country: PL (occurrence: PL)
  Receive Date: 20200813
  Receipt Date: 20200813
  Transmission Date: 20201103
  Serious: Yes (Hospitalization)
  Sender: FDA-Public Use
  Company Number: PL-MYLANLABS-2020M1070771

PATIENT
  Age: 42 Year
  Sex: Female

DRUGS (14)
  1. DULOXETINE. [Interacting]
     Active Substance: DULOXETINE
     Indication: HYPERTENSION
     Dosage: 90 MILLIGRAM, QD
  2. METOCLOPRAMIDE. [Concomitant]
     Active Substance: METOCLOPRAMIDE
     Indication: VOMITING
  3. DEXAMETHASONE. [Concomitant]
     Active Substance: DEXAMETHASONE
     Indication: VOMITING
  4. DIMENHYDRINATE. [Concomitant]
     Active Substance: DIMENHYDRINATE
     Indication: NAUSEA
     Dosage: UNK
  5. DIMENHYDRINATE. [Concomitant]
     Active Substance: DIMENHYDRINATE
     Indication: VOMITING
  6. DEXAMETHASONE. [Concomitant]
     Active Substance: DEXAMETHASONE
     Indication: NAUSEA
     Dosage: UNK
  7. CIPROFLOXACIN. [Concomitant]
     Active Substance: CIPROFLOXACIN
     Dosage: UNK
  8. QUETIAPINE. [Suspect]
     Active Substance: QUETIAPINE
     Indication: HYPERTENSION
     Dosage: 25 MILLIGRAM, QD
  9. MORPHINE [Concomitant]
     Active Substance: MORPHINE
     Indication: HYPERTENSION
     Dosage: UNK
  10. OLANZAPINE. [Suspect]
     Active Substance: OLANZAPINE
     Indication: PRODUCT USED FOR UNKNOWN INDICATION
     Dosage: FROM 5 MG TO 10MG/DAY
  11. AMLODIPINE W/PERINDOPRIL [Interacting]
     Active Substance: AMLODIPINE BESYLATE\PERINDOPRIL
     Indication: HYPERTENSION
     Dosage: UNK
  12. METOCLOPRAMIDE. [Concomitant]
     Active Substance: METOCLOPRAMIDE
     Indication: NAUSEA
     Dosage: UNK
  13. MIDAZOLAM. [Concomitant]
     Active Substance: MIDAZOLAM
     Dosage: UNK
  14. PREGABALIN. [Suspect]
     Active Substance: PREGABALIN
     Indication: HYPERTENSION
     Dosage: 300 MILLIGRAM, QD

REACTIONS (7)
  - Polydipsia [Unknown]
  - Anxiety [Unknown]
  - Urinary retention [Unknown]
  - Vomiting [Unknown]
  - Drug interaction [Unknown]
  - Tinnitus [Unknown]
  - Paraesthesia [Unknown]
